FAERS Safety Report 5429783-9 (Version None)
Quarter: 2007Q3

REPORT INFORMATION
  Report Type: 
  Country: None (occurrence: None)
  Receive Date: 20070827
  Receipt Date: 20070810
  Transmission Date: 20080115
  Serious: Yes (Other)
  Sender: FDA-Public Use
  Company Number: 8025978

PATIENT
  Age: 44 Year
  Sex: Male
  Weight: 55.2 kg

DRUGS (15)
  1. KEPPRA [Suspect]
     Indication: COMPLEX PARTIAL SEIZURES
     Dosage: 1000 MG 2/D IV
     Route: 042
     Dates: start: 20070712, end: 20070712
  2. KEPPRA [Suspect]
     Indication: COMPLEX PARTIAL SEIZURES
     Dosage: 1000 MG /D PO
     Route: 048
     Dates: start: 20070713, end: 20070713
  3. KEPPRA [Suspect]
     Indication: COMPLEX PARTIAL SEIZURES
     Dosage: 2000 MG 4/D IV
     Route: 042
     Dates: start: 20070713, end: 20070713
  4. KEPPRA [Suspect]
     Indication: COMPLEX PARTIAL SEIZURES
     Dosage: 1000 MG 3/D PO
     Route: 048
     Dates: start: 20070804, end: 20070805
  5. KEPPRA [Suspect]
     Indication: COMPLEX PARTIAL SEIZURES
     Dosage: 1500 MG 2/D IV
     Route: 042
     Dates: start: 20070805, end: 20070806
  6. KEPPRA [Suspect]
     Indication: COMPLEX PARTIAL SEIZURES
     Dosage: 2000 MG 4/D IV
     Route: 042
     Dates: start: 20070806, end: 20070807
  7. KEPPRA [Suspect]
     Indication: COMPLEX PARTIAL SEIZURES
     Dosage: 2000 MG 2/D IV
     Route: 042
     Dates: start: 20070807, end: 20070808
  8. KEPPRA [Suspect]
     Dosage: 1000 MG 3/D PO
     Route: 048
  9. DILANTIN [Concomitant]
  10. TOPAMAX [Concomitant]
  11. DEPAKENE /00228502/ [Concomitant]
  12. DEPAKOTE [Concomitant]
  13. DIASTAT /0017001/ [Concomitant]
  14. LAMICTAL [Concomitant]
  15. ATIVAN [Concomitant]

REACTIONS (6)
  - ANAEMIA [None]
  - CALCINOSIS [None]
  - CEREBELLAR ATROPHY [None]
  - CEREBRAL ATROPHY [None]
  - CONVULSION [None]
  - MYELOPATHY [None]
